FAERS Safety Report 4879661-9 (Version None)
Quarter: 2006Q1

REPORT INFORMATION
  Report Type: 
  Country: None (occurrence: None)
  Receive Date: 20060111
  Receipt Date: 20051221
  Transmission Date: 20060701
  Serious: Yes (Other)
  Sender: FDA-Public Use
  Company Number: US200512003896

PATIENT
  Age: 71 Year
  Sex: Female
  Weight: 61.7 kg

DRUGS (9)
  1. FORTEO [Suspect]
     Indication: OSTEOPOROSIS
     Dates: start: 20040601, end: 20051218
  2. EVISTA [Suspect]
     Indication: OSTEOPOROSIS
     Dosage: ORAL
     Route: 048
     Dates: start: 20030601, end: 20040601
  3. EVISTA [Suspect]
     Indication: OSTEOPOROSIS
     Dosage: ORAL
     Route: 048
     Dates: start: 20051218
  4. FORTEO PEN (FORTEO PEN) PEN, DISPOSABLE [Concomitant]
  5. ZESTRIL [Concomitant]
  6. CALCIUM (CALCIUM) TABLET [Concomitant]
  7. VITAMIN E (TOCOPHEROL) TABLET [Concomitant]
  8. GLUCOSAMINE (GLUCOSAMINE) TABLET [Concomitant]
  9. .. [Concomitant]

REACTIONS (2)
  - BONE DENSITY DECREASED [None]
  - DIABETES MELLITUS [None]
